FAERS Safety Report 24383486 (Version 1)
Quarter: 2024Q4

REPORT INFORMATION
  Report Type: Spontaneous
  Country: CN (occurrence: CN)
  Receive Date: 20241001
  Receipt Date: 20241001
  Transmission Date: 20250115
  Serious: Yes (Other)
  Sender: NOVARTIS
  Company Number: CN-002147023-NVSC2024CN190660

PATIENT
  Age: 44 Year
  Weight: 40.5 kg

DRUGS (1)
  1. ALPELISIB [Suspect]
     Active Substance: ALPELISIB
     Indication: Prophylaxis
     Dosage: 300 MG, QD (FOR 28 DAYS)
     Route: 048
     Dates: start: 20240512, end: 20240609

REACTIONS (4)
  - Blood glucose increased [Recovering/Resolving]
  - Pyrexia [Recovering/Resolving]
  - Oropharyngeal pain [Unknown]
  - Nasopharyngitis [Recovering/Resolving]

NARRATIVE: CASE EVENT DATE: 20240519
